FAERS Safety Report 8366363-X (Version None)
Quarter: 2012Q2

REPORT INFORMATION
  Report Type: 
  Country: None (occurrence: None)
  Receive Date: 20120517
  Receipt Date: 20120509
  Transmission Date: 20120825
  Serious: Yes (Hospitalization)
  Sender: FDA-Public Use
  Company Number: US-US-EMD SERONO, INC.-7132051

PATIENT
  Sex: Female
  Weight: 91 kg

DRUGS (2)
  1. EXTRA STRENGTH TYLENOL [Concomitant]
     Indication: PREMEDICATION
  2. REBIF [Suspect]
     Indication: MULTIPLE SCLEROSIS
     Route: 058
     Dates: start: 20090712

REACTIONS (1)
  - ANAEMIA [None]
